FAERS Safety Report 22615084 (Version 2)
Quarter: 2023Q2

REPORT INFORMATION
  Report Type: Spontaneous
  Country: ES (occurrence: ES)
  Receive Date: 20230619
  Receipt Date: 20230629
  Transmission Date: 20230721
  Serious: Yes (Hospitalization)
  Sender: FDA-Public Use
  Company Number: ES-LUNDBECK-DKLU3063529

PATIENT
  Age: 28 Year
  Sex: Female
  Weight: 80 kg

DRUGS (4)
  1. BRINTELLIX [Suspect]
     Active Substance: VORTIOXETINE HYDROBROMIDE
     Indication: Mixed anxiety and depressive disorder
     Dosage: 10 MILLIGRAM
     Route: 048
     Dates: start: 20221018
  2. BRINTELLIX [Suspect]
     Active Substance: VORTIOXETINE HYDROBROMIDE
     Dosage: 15 MILLIGRAM
     Route: 048
     Dates: start: 202302, end: 20230610
  3. MELATONIN [Concomitant]
     Active Substance: MELATONIN
     Indication: Product used for unknown indication
     Dosage: UNK
     Route: 065
  4. DEXKETOPROFEN TROMETAMOL [Concomitant]
     Active Substance: DEXKETOPROFEN TROMETAMOL
     Indication: Dysmenorrhoea
     Dosage: UNK
     Route: 065

REACTIONS (3)
  - Contusion [Recovered/Resolved]
  - Limb discomfort [Recovering/Resolving]
  - Product dose omission in error [Unknown]

NARRATIVE: CASE EVENT DATE: 20230501
